FAERS Safety Report 25522014 (Version 2)
Quarter: 2025Q4

REPORT INFORMATION
  Report Type: Spontaneous
  Country: US (occurrence: US)
  Receive Date: 20250706
  Receipt Date: 20251002
  Transmission Date: 20260117
  Serious: Yes (Hospitalization, Other)
  Sender: JOHNSON AND JOHNSON
  Company Number: US-JNJFOC-20250700051

PATIENT
  Age: 10 Year

DRUGS (1)
  1. INFLIXIMAB [Suspect]
     Active Substance: INFLIXIMAB
     Indication: Crohn^s disease
     Dosage: PATIENT RECEIVED HER FIRST DOSE OF INFLIXIMAB ON 16-MAR-2025 OR 17-MAR-2025.
     Route: 041

REACTIONS (9)
  - Intestinal stenosis [Unknown]
  - Heart rate decreased [Not Recovered/Not Resolved]
  - Hypotension [Recovered/Resolved]
  - Abdominal pain [Unknown]
  - Nausea [Unknown]
  - Headache [Unknown]
  - Hyperhidrosis [Unknown]
  - Chills [Unknown]
  - Off label use [Unknown]

NARRATIVE: CASE EVENT DATE: 20250619
